FAERS Safety Report 23561429 (Version 4)
Quarter: 2024Q2

REPORT INFORMATION
  Report Type: Spontaneous
  Country: US (occurrence: US)
  Receive Date: 20240224
  Receipt Date: 20240408
  Transmission Date: 20240716
  Serious: No
  Sender: FDA-Public Use
  Company Number: US-GSK-US2024AMR023998

PATIENT
  Sex: Female

DRUGS (1)
  1. WELLBUTRIN XL [Suspect]
     Active Substance: BUPROPION HYDROCHLORIDE
     Indication: Depression
     Dosage: 150 MG

REACTIONS (7)
  - Adverse drug reaction [Unknown]
  - Insurance issue [Unknown]
  - Inability to afford medication [Unknown]
  - Product odour abnormal [Unknown]
  - Product colour issue [Unknown]
  - Product expiration date issue [Unknown]
  - Product quality issue [Unknown]
